FAERS Safety Report 9217887 (Version 1)
Quarter: 2013Q2

REPORT INFORMATION
  Report Type: Report from Study
  Country: US (occurrence: US)
  Receive Date: 20130408
  Receipt Date: 20130408
  Transmission Date: 20140414
  Serious: Yes (Other)
  Sender: FDA-Public Use
  Company Number: US-BAXTER-2013BAX012976

PATIENT
  Sex: 0

DRUGS (5)
  1. CYTOXAN [Suspect]
     Indication: B-CELL LYMPHOMA
     Dosage: DAY 3
     Route: 065
  2. OFATUMUMAB [Suspect]
     Indication: B-CELL LYMPHOMA
     Dosage: DAY 1
     Route: 065
  3. DOXORUBICIN [Suspect]
     Indication: B-CELL LYMPHOMA
     Dosage: DAY 3
     Route: 065
  4. VINCRISTINE [Suspect]
     Indication: B-CELL LYMPHOMA
     Dosage: DAY 3
     Route: 065
  5. PREDNISONE [Suspect]
     Indication: B-CELL LYMPHOMA
     Dosage: DAY 3
     Route: 065

REACTIONS (1)
  - Pneumonia [Unknown]
